FAERS Safety Report 7685325-9 (Version None)
Quarter: 2011Q3

REPORT INFORMATION
  Report Type: 
  Country: None (occurrence: None)
  Receive Date: 20110815
  Receipt Date: 20110815
  Transmission Date: 20111222
  Serious: Yes (Life-Threatening)
  Sender: FDA-Public Use
  Company Number: None

PATIENT
  Age: 30 Year
  Sex: Male

DRUGS (1)
  1. ZOLPIDEM [Suspect]
     Indication: INSOMNIA
     Dosage: 10MG OCCASIONAL
     Dates: start: 20110420, end: 20110601

REACTIONS (2)
  - ROAD TRAFFIC ACCIDENT [None]
  - MEMORY IMPAIRMENT [None]
